FAERS Safety Report 6852548-8 (Version None)
Quarter: 2010Q3

REPORT INFORMATION
  Report Type: 
  Country: None (occurrence: None)
  Receive Date: 20100717
  Receipt Date: 20071115
  Transmission Date: 20110219
  Serious: No
  Sender: FDA-Public Use
  Company Number: US-PFIZER INC-2007098583

PATIENT
  Sex: Female
  Weight: 69.4 kg

DRUGS (10)
  1. CHANTIX [Suspect]
     Indication: SMOKING CESSATION THERAPY
     Dates: start: 20071101
  2. LYRICA [Concomitant]
  3. VALSARTAN [Concomitant]
  4. CELEBREX [Concomitant]
  5. METHADONE HCL [Concomitant]
  6. KLONOPIN [Concomitant]
  7. EFFEXOR XR [Concomitant]
  8. BACLOFEN [Concomitant]
  9. MORPHINE SULFATE [Concomitant]
  10. ANALGESICS [Concomitant]

REACTIONS (4)
  - HEADACHE [None]
  - NAUSEA [None]
  - PAIN [None]
  - SALIVARY HYPERSECRETION [None]
